FAERS Safety Report 17520400 (Version 1)
Quarter: 2020Q1

REPORT INFORMATION
  Report Type: Spontaneous
  Country: US (occurrence: US)
  Receive Date: 20200310
  Receipt Date: 20200310
  Transmission Date: 20200409
  Serious: No
  Sender: FDA-Public Use
  Company Number: US-ALKERMES INC.-ALK-2020-001000

PATIENT
  Age: 50 Year
  Sex: Female
  Weight: 99.77 kg

DRUGS (2)
  1. VIVITROL [Suspect]
     Active Substance: NALTREXONE
     Indication: ALCOHOLISM
     Dosage: 380 MG, QMO
     Route: 030
     Dates: start: 20200220
  2. VIVITROL [Suspect]
     Active Substance: NALTREXONE
     Indication: FIBROMYALGIA
     Dosage: 380 MG, QMO
     Route: 030
     Dates: start: 201408, end: 201408

REACTIONS (15)
  - Decreased activity [Not Recovered/Not Resolved]
  - Injection site bruising [Recovered/Resolved]
  - Joint injury [Not Recovered/Not Resolved]
  - Depressed mood [Not Recovered/Not Resolved]
  - Back pain [Recovered/Resolved]
  - Injection site pain [Recovered/Resolved]
  - Product dose omission [Recovered/Resolved]
  - Injection site mass [Recovered/Resolved]
  - Skin hypertrophy [Unknown]
  - Weight increased [Not Recovered/Not Resolved]
  - Pain in extremity [Recovered/Resolved]
  - Malaise [Unknown]
  - Dementia [Not Recovered/Not Resolved]
  - Off label use [Not Recovered/Not Resolved]
  - Injection site reaction [Recovered/Resolved]
